FAERS Safety Report 20956385 (Version 2)
Quarter: 2022Q2

REPORT INFORMATION
  Report Type: Report from Study
  Country: AU (occurrence: AU)
  Receive Date: 20220614
  Receipt Date: 20220629
  Transmission Date: 20220721
  Serious: Yes (Hospitalization)
  Sender: FDA-Public Use
  Company Number: AU-ABBVIE-22P-008-4426781-00

PATIENT
  Age: 84 Year
  Sex: Male
  Weight: 85 kg

DRUGS (19)
  1. VENETOCLAX [Suspect]
     Active Substance: VENETOCLAX
     Indication: Acute myeloid leukaemia
     Route: 048
     Dates: start: 20210901
  2. VENETOCLAX [Suspect]
     Active Substance: VENETOCLAX
     Route: 048
  3. MIDOSTAURIN [Concomitant]
     Active Substance: MIDOSTAURIN
     Indication: Acute myeloid leukaemia
     Route: 048
     Dates: start: 20210910
  4. POSACONAZOLE [Concomitant]
     Active Substance: POSACONAZOLE
     Indication: Antifungal prophylaxis
     Dosage: IN MORNING
     Dates: start: 20210905
  5. BACTRIM [Concomitant]
     Active Substance: SULFAMETHOXAZOLE\TRIMETHOPRIM
     Indication: Antibiotic prophylaxis
     Dosage: 160-800 MG
     Dates: start: 20210831
  6. VALACYCLOVIR HYDROCHLORIDE [Concomitant]
     Active Substance: VALACYCLOVIR HYDROCHLORIDE
     Indication: Antiviral prophylaxis
     Dosage: IN MORNING
     Dates: start: 20210901
  7. ALLOPURINOL [Concomitant]
     Active Substance: ALLOPURINOL
     Indication: Prophylaxis
     Dosage: IN MORNING
     Dates: start: 20210831
  8. METOCLOPRAMIDE [Concomitant]
     Active Substance: METOCLOPRAMIDE
     Indication: Prophylaxis of nausea and vomiting
     Dosage: 10-20 MG
     Dates: start: 20210831
  9. LOPERAMIDE [Concomitant]
     Active Substance: LOPERAMIDE
     Indication: Prophylaxis against diarrhoea
     Dates: start: 20210831
  10. ATENOLOL [Concomitant]
     Active Substance: ATENOLOL
     Indication: Hypertension
     Dates: start: 20210827
  11. TESTOSTERONE [Concomitant]
     Active Substance: TESTOSTERONE
     Indication: Hormone level abnormal
     Dosage: 50MG /5 G?AT NIGHT
  12. TESTOSTERONE [Concomitant]
     Active Substance: TESTOSTERONE
     Indication: Orchidectomy
  13. CYTAMEN [Concomitant]
     Indication: Vitamin B12 deficiency
     Dosage: 1000 MCG/ML
     Dates: start: 20210907
  14. NASONEX [Concomitant]
     Active Substance: MOMETASONE FUROATE
     Indication: Nasal decongestion therapy
     Dosage: 50 MCG/ SPRAY?1 SPRAY AS NEEDED
  15. SPAN K [Concomitant]
     Indication: Hypokalaemia
     Dates: start: 20210915
  16. MAGNESIUM ASPARTATE [Concomitant]
     Active Substance: MAGNESIUM ASPARTATE
     Indication: Hypomagnesaemia
     Dates: start: 20210913
  17. FUROSEMIDE [Concomitant]
     Active Substance: FUROSEMIDE
     Indication: Product used for unknown indication
  18. ACETAMINOPHEN [Concomitant]
     Active Substance: ACETAMINOPHEN
     Indication: Product used for unknown indication
  19. TRIMETHOPRIM [Concomitant]
     Active Substance: TRIMETHOPRIM
     Indication: Product used for unknown indication
     Dosage: 160-800 MILLIGRAMS

REACTIONS (1)
  - Upper gastrointestinal haemorrhage [Recovered/Resolved]

NARRATIVE: CASE EVENT DATE: 20220604
